FAERS Safety Report 11253088 (Version 1)
Quarter: 2015Q3

REPORT INFORMATION
  Report Type: Spontaneous
  Country: GB (occurrence: GB)
  Receive Date: 20150709
  Receipt Date: 20150709
  Transmission Date: 20151125
  Serious: Yes (Hospitalization, Other)
  Sender: FDA-Public Use
  Company Number: GB-ROCHE-1603768

PATIENT
  Age: 70 Year
  Sex: Male

DRUGS (5)
  1. PREDNISOLONE. [Concomitant]
     Active Substance: PREDNISOLONE
     Indication: B-CELL LYMPHOMA
     Dosage: 7 CYCLES
     Route: 065
  2. RITUXIMAB [Suspect]
     Active Substance: RITUXIMAB
     Route: 042
  3. CYCLOPHOSPHAMIDE. [Concomitant]
     Active Substance: CYCLOPHOSPHAMIDE
     Indication: B-CELL LYMPHOMA
     Route: 065
  4. RITUXIMAB [Suspect]
     Active Substance: RITUXIMAB
     Indication: B-CELL LYMPHOMA
     Route: 042
     Dates: start: 201112
  5. VINCRISTINE [Concomitant]
     Active Substance: VINCRISTINE
     Indication: B-CELL LYMPHOMA
     Dosage: 7 CYCLES
     Route: 065

REACTIONS (13)
  - Urinary tract infection [Unknown]
  - Alanine aminotransferase increased [Recovering/Resolving]
  - Weight decreased [Unknown]
  - Sepsis [Unknown]
  - Clostridium difficile colitis [Unknown]
  - Hepatitis fulminant [Unknown]
  - Enterovirus infection [Unknown]
  - Blood bilirubin increased [Recovering/Resolving]
  - Bronchitis [Unknown]
  - Blood alkaline phosphatase increased [Recovering/Resolving]
  - Cytomegalovirus infection [Unknown]
  - Meningoencephalitis viral [Unknown]
  - Malaise [Unknown]
